FAERS Safety Report 8000300-2 (Version None)
Quarter: 2011Q4

REPORT INFORMATION
  Report Type: 
  Country: None (occurrence: None)
  Receive Date: 20111216
  Receipt Date: 20111207
  Transmission Date: 20120403
  Serious: Yes (Hospitalization)
  Sender: FDA-Public Use
  Company Number: 2011SP057093

PATIENT
  Age: 45 Year
  Sex: Male

DRUGS (3)
  1. PEGINTERFERON ALFA-2B [Suspect]
     Indication: HEPATITIS C
     Dates: start: 20110101
  2. VICTRELIS [Suspect]
     Indication: HEPATITIS C
     Dates: start: 20110101
  3. REBETOL [Suspect]
     Indication: HEPATITIS C
     Dates: start: 20110101

REACTIONS (2)
  - LYMPHADENOPATHY [None]
  - MONOCYTOSIS [None]
